FAERS Safety Report 7803051-X (Version None)
Quarter: 2011Q4

REPORT INFORMATION
  Report Type: 
  Country: None (occurrence: None)
  Receive Date: 20111005
  Receipt Date: 20110921
  Transmission Date: 20120403
  Serious: Yes (Death)
  Sender: FDA-Public Use
  Company Number: 2011MA014464

PATIENT
  Age: 69 Year
  Sex: Female

DRUGS (5)
  1. FUROSEMIDE [Concomitant]
  2. METFORMIN HYDROCHLORIDE [Suspect]
     Indication: TYPE 2 DIABETES MELLITUS
     Dosage: 1.5 GM;QD
     Dates: start: 20110301, end: 20110530
  3. OMEPRAZOLE [Concomitant]
  4. NORMORIX [Concomitant]
  5. BETOLVIDON [Concomitant]

REACTIONS (11)
  - BRADYCARDIA [None]
  - LACTIC ACIDOSIS [None]
  - GENERAL PHYSICAL HEALTH DETERIORATION [None]
  - RESPIRATORY ARREST [None]
  - DEPRESSED LEVEL OF CONSCIOUSNESS [None]
  - BASE EXCESS [None]
  - VENTRICULAR FIBRILLATION [None]
  - WEIGHT DECREASED [None]
  - RESPIRATORY RATE INCREASED [None]
  - THERAPEUTIC RESPONSE DECREASED [None]
  - BLOOD CREATININE INCREASED [None]
